FAERS Safety Report 9259574 (Version 1)
Quarter: 2013Q2

REPORT INFORMATION
  Report Type: Report from Study
  Country: US (occurrence: US)
  Receive Date: 20130429
  Receipt Date: 20130429
  Transmission Date: 20140414
  Serious: Yes (Hospitalization)
  Sender: FDA-Public Use
  Company Number: US-009507513-1304USA013746

PATIENT
  Age: 71 Year
  Sex: Female
  Weight: 67.6 kg

DRUGS (3)
  1. FUROSEMIDE [Suspect]
     Dosage: UNK
     Route: 042
     Dates: start: 20121002
  2. FUROSEMIDE [Suspect]
     Dosage: 40 MG IN THE MORNING
     Route: 042
     Dates: start: 20121030
  3. FUROSEMIDE [Suspect]
     Dosage: 20 MG IN THE EVENING
     Route: 042

REACTIONS (1)
  - Cardiac failure [Recovering/Resolving]
